FAERS Safety Report 10072515 (Version 1)
Quarter: 2014Q2

REPORT INFORMATION
  Report Type: Spontaneous
  Country: US (occurrence: None)
  Receive Date: 20140409
  Receipt Date: 20140409
  Transmission Date: 20141212
  Serious: Yes (Hospitalization, Other)
  Sender: FDA-Public Use
  Company Number: 2014P1002746

PATIENT
  Age: 33 Year
  Sex: Male

DRUGS (1)
  1. ACTIMMUNE [Suspect]
     Indication: MYCOBACTERIUM AVIUM COMPLEX INFECTION
     Route: 058
     Dates: start: 201306

REACTIONS (2)
  - Abdominal cavity drainage [None]
  - Therapy cessation [None]
